FAERS Safety Report 23464188 (Version 1)
Quarter: 2024Q1

REPORT INFORMATION
  Report Type: Spontaneous
  Country: FR (occurrence: FR)
  Receive Date: 20240201
  Receipt Date: 20240201
  Transmission Date: 20240410
  Serious: Yes (Other)
  Sender: FDA-Public Use
  Company Number: FR-THERAMEX-2021000569

PATIENT
  Age: 48 Year
  Sex: Female

DRUGS (4)
  1. CALCIUM [Suspect]
     Active Substance: CALCIUM
     Indication: Product used for unknown indication
     Dosage: UNK
     Route: 065
  2. DOXYLAMINE [Suspect]
     Active Substance: DOXYLAMINE
     Indication: Product used for unknown indication
     Dosage: UNK
     Route: 065
  3. PROGESTERONE [Suspect]
     Active Substance: PROGESTERONE
     Indication: Product used for unknown indication
     Dosage: UNK
     Route: 065
  4. ESTRADIOL [Suspect]
     Active Substance: ESTRADIOL
     Indication: Product used for unknown indication
     Dosage: UNK UNK, QD (ONCE A DAY, TWO PRESSURES)
     Route: 061
     Dates: start: 20210603

REACTIONS (6)
  - Gait inability [Recovered/Resolved]
  - Aphasia [Recovered/Resolved]
  - Eye disorder [Recovered/Resolved]
  - Syncope [Recovered/Resolved]
  - Feeling cold [Unknown]
  - Fatigue [Unknown]

NARRATIVE: CASE EVENT DATE: 20210603
